FAERS Safety Report 14122653 (Version 1)
Quarter: 2017Q4

REPORT INFORMATION
  Report Type: Spontaneous
  Country: FR (occurrence: FR)
  Receive Date: 20171025
  Receipt Date: 20171025
  Transmission Date: 20180321
  Serious: Yes (Life-Threatening)
  Sender: FDA-Public Use
  Company Number: FR-ELI_LILLY_AND_COMPANY-FR201710009540

PATIENT
  Age: 56 Year
  Sex: Male

DRUGS (7)
  1. 5-FU                               /00098801/ [Concomitant]
     Active Substance: FLUOROURACIL
     Dosage: 400 MG/M2, UNKNOWN
     Route: 040
     Dates: start: 20170911
  2. CALCIUM FOLINATE [Concomitant]
     Active Substance: LEUCOVORIN CALCIUM
     Indication: COLORECTAL ADENOCARCINOMA
     Dosage: UNK UNK, UNKNOWN
     Route: 065
     Dates: start: 20170703, end: 20170828
  3. IRINOTECAN [Concomitant]
     Active Substance: IRINOTECAN
     Dosage: 180 MG/M2, UNKNOWN
     Route: 065
     Dates: start: 20170911
  4. ERBITUX [Suspect]
     Active Substance: CETUXIMAB
     Indication: COLORECTAL ADENOCARCINOMA
     Dosage: 500 MG/M2, UNKNOWN
     Route: 042
     Dates: start: 20170911, end: 20170911
  5. CALCIUM FOLINATE [Concomitant]
     Active Substance: LEUCOVORIN CALCIUM
     Dosage: 400 MG/M2, UNKNOWN
     Route: 065
     Dates: start: 20170911
  6. 5-FU                               /00098801/ [Concomitant]
     Active Substance: FLUOROURACIL
     Indication: COLORECTAL ADENOCARCINOMA
     Dosage: UNK, UNKNOWN
     Route: 065
     Dates: start: 20170703, end: 20170828
  7. IRINOTECAN [Concomitant]
     Active Substance: IRINOTECAN
     Indication: COLORECTAL ADENOCARCINOMA
     Dosage: UNK UNK, UNKNOWN
     Route: 065
     Dates: start: 20170703, end: 20170828

REACTIONS (4)
  - Hypotension [Recovered/Resolved]
  - Erythema [Recovered/Resolved]
  - Anaphylactic shock [Recovered/Resolved]
  - Loss of consciousness [Recovered/Resolved]

NARRATIVE: CASE EVENT DATE: 20170911
